FAERS Safety Report 9732978 (Version 1)
Quarter: 2013Q4

REPORT INFORMATION
  Report Type: Spontaneous
  Country: US (occurrence: None)
  Receive Date: 20131204
  Receipt Date: 20131204
  Transmission Date: 20140711
  Serious: Yes (Hospitalization)
  Sender: FDA-Public Use
  Company Number: None

PATIENT
  Sex: Male

DRUGS (1)
  1. MELLARIL [Suspect]
     Route: 048
     Dates: start: 20000905, end: 20000906

REACTIONS (2)
  - Pain [None]
  - Priapism [None]
